FAERS Safety Report 6355644-7 (Version None)
Quarter: 2009Q3

REPORT INFORMATION
  Report Type: 
  Country: None (occurrence: None)
  Receive Date: 20090910
  Receipt Date: 20090827
  Transmission Date: 20100115
  Serious: Yes (Hospitalization)
  Sender: FDA-Public Use
  Company Number: ADR18852009

PATIENT
  Age: 72 Year
  Sex: Female

DRUGS (13)
  1. ALENDRONATE SODIUM [Suspect]
     Indication: OSTEOARTHRITIS
  2. CALCICHEW [Concomitant]
  3. CARBAMAZEPINE [Concomitant]
  4. GAVISCON [Concomitant]
  5. ACETAMINOPHEN [Concomitant]
  6. RISENDRONATE [Concomitant]
  7. SERTETIDE [Concomitant]
  8. LEVOTHYROXINE SODIUM [Concomitant]
  9. VENTOLIN [Concomitant]
  10. WARFARIN SODIUM [Concomitant]
  11. ZOLMITRIPTAN [Concomitant]
  12. PANTOPRAZOLE SODIUM [Concomitant]
  13. CODEINE PHOSPHATE [Concomitant]

REACTIONS (3)
  - CEREBROVASCULAR ACCIDENT [None]
  - COUGH [None]
  - DYSPNOEA [None]
